FAERS Safety Report 12702758 (Version 12)
Quarter: 2017Q3

REPORT INFORMATION
  Report Type: Spontaneous
  Country: KR (occurrence: KR)
  Receive Date: 20160831
  Receipt Date: 20170724
  Transmission Date: 20171127
  Serious: Yes (Hospitalization, Other)
  Sender: FDA-Public Use
  Company Number: JP-009507513-1606KOR011040

PATIENT
  Age: 75 Year
  Sex: Male
  Weight: 71.1 kg

DRUGS (72)
  1. ADRIAMYCIN [Concomitant]
     Active Substance: DOXORUBICIN HYDROCHLORIDE
     Dosage: 67.1 MG, ONCE, CYCLE 2
     Route: 042
     Dates: start: 20160707, end: 20160707
  2. ADRIAMYCIN [Concomitant]
     Active Substance: DOXORUBICIN HYDROCHLORIDE
     Dosage: 66 MG, ONCE, CYCLE 5
     Route: 042
     Dates: start: 20160908, end: 20160908
  3. LASTET [Concomitant]
     Active Substance: ETOPOSIDE
     Dosage: 131.2 MG, ONCE, CYCLE 3. STRENGTH: 100MG/5ML
     Route: 042
     Dates: start: 20160728, end: 20160728
  4. ENDOXAN [Concomitant]
     Active Substance: CYCLOPHOSPHAMIDE
     Dosage: 1006 MG, ONCE, CYCLE 2
     Route: 042
     Dates: start: 20160707, end: 20160707
  5. ENDOXAN [Concomitant]
     Active Substance: CYCLOPHOSPHAMIDE
     Dosage: 1023 MG, ONCE, CYCLE 4
     Route: 042
     Dates: start: 20160818, end: 20160818
  6. SOLONDO [Concomitant]
     Active Substance: PREDNISOLONE
     Dosage: 30 MG, BID
     Route: 048
     Dates: start: 20160707, end: 20160707
  7. LEVOFEXIN [Concomitant]
     Active Substance: LEVOFLOXACIN
     Dosage: 500 MG, QD
     Route: 048
     Dates: start: 20160929, end: 20161008
  8. EMEND (FOSAPREPITANT DIMEGLUMINE) [Suspect]
     Active Substance: FOSAPREPITANT DIMEGLUMINE
     Dosage: 150 MG, ONCE
     Route: 042
     Dates: start: 20160728, end: 20160728
  9. EMEND (FOSAPREPITANT DIMEGLUMINE) [Suspect]
     Active Substance: FOSAPREPITANT DIMEGLUMINE
     Dosage: 150 MG, ONCE
     Route: 042
     Dates: start: 20160908, end: 20160908
  10. DBL VINCRISTINE SULFATE [Concomitant]
     Active Substance: VINCRISTINE SULFATE
     Dosage: 1.9 MG, ONCE, CYCLE 4 (1 ML). STRENGTH: 1MG/1ML
     Route: 042
     Dates: start: 20160818, end: 20160818
  11. SOLONDO [Concomitant]
     Active Substance: PREDNISOLONE
     Indication: PROPHYLAXIS OF NAUSEA AND VOMITING
     Dosage: 40 MG, QD
     Route: 048
     Dates: start: 20160616, end: 20160620
  12. ALOXI [Concomitant]
     Active Substance: PALONOSETRON HYDROCHLORIDE
     Dosage: 0.25 MG, ONCE
     Route: 042
     Dates: start: 20160728, end: 20160728
  13. CARDIOXANE [Concomitant]
     Active Substance: DEXRAZOXANE HYDROCHLORIDE
     Dosage: 660 MG, ONCE
     Route: 042
     Dates: start: 20160929, end: 20160929
  14. SEPTRIN [Concomitant]
     Active Substance: SULFAMETHOXAZOLE\TRIMETHOPRIM
     Indication: INFECTION PROPHYLAXIS
     Dosage: 1 TABLET, BID
     Route: 048
     Dates: start: 20160616, end: 20160622
  15. EMEND (FOSAPREPITANT DIMEGLUMINE) [Suspect]
     Active Substance: FOSAPREPITANT DIMEGLUMINE
     Indication: PROPHYLAXIS OF NAUSEA AND VOMITING
     Dosage: 150 MG, ONCE
     Route: 042
     Dates: start: 20160616, end: 20160616
  16. ADRIAMYCIN [Concomitant]
     Active Substance: DOXORUBICIN HYDROCHLORIDE
     Indication: ANGIOIMMUNOBLASTIC T-CELL LYMPHOMA
     Dosage: 69.7 MG, ONCE, CYCLE 1
     Route: 042
     Dates: start: 20160616, end: 20160616
  17. DBL VINCRISTINE SULFATE [Concomitant]
     Active Substance: VINCRISTINE SULFATE
     Indication: ANGIOIMMUNOBLASTIC T-CELL LYMPHOMA
     Dosage: 1.9 MG, ONCE, CYCLE 1 (1 ML). STRENGTH: 1MG/1ML
     Route: 042
     Dates: start: 20160616, end: 20160616
  18. DBL VINCRISTINE SULFATE [Concomitant]
     Active Substance: VINCRISTINE SULFATE
     Dosage: 1.8 MG, ONCE, CYCLE 2 (1 ML). STRENGTH: 1MG/1ML
     Route: 042
     Dates: start: 20160707, end: 20160707
  19. DBL VINCRISTINE SULFATE [Concomitant]
     Active Substance: VINCRISTINE SULFATE
     Dosage: 1.8 MG, ONCE, CYCLE 3 (1 ML). STRENGTH: 1MG/1ML
     Route: 042
     Dates: start: 20160728, end: 20160728
  20. SOLONDO [Concomitant]
     Active Substance: PREDNISOLONE
     Dosage: 30 MG, BID
     Route: 048
     Dates: start: 20160908, end: 20160912
  21. ALOXI [Concomitant]
     Active Substance: PALONOSETRON HYDROCHLORIDE
     Dosage: 0.25 MG, ONCE
     Route: 042
     Dates: start: 20160818, end: 20160818
  22. CARDIOXANE [Concomitant]
     Active Substance: DEXRAZOXANE HYDROCHLORIDE
     Indication: PROPHYLAXIS
     Dosage: 697 MG, ONCE
     Route: 042
     Dates: start: 20160616, end: 20160616
  23. SEPTRIN [Concomitant]
     Active Substance: SULFAMETHOXAZOLE\TRIMETHOPRIM
     Dosage: 1 TABLET, QD
     Route: 048
     Dates: start: 20160728, end: 20160804
  24. LASIX [Concomitant]
     Active Substance: FUROSEMIDE
     Indication: PLEURAL EFFUSION
     Dosage: 40 MG, QD
     Route: 048
     Dates: start: 20160617, end: 20160627
  25. LYRICA [Concomitant]
     Active Substance: PREGABALIN
     Indication: NEUROPATHY PERIPHERAL
     Dosage: 75 MG, BID
     Route: 048
     Dates: start: 20160612
  26. EMEND (FOSAPREPITANT DIMEGLUMINE) [Suspect]
     Active Substance: FOSAPREPITANT DIMEGLUMINE
     Dosage: 150 MG, ONCE
     Route: 042
     Dates: start: 20160929, end: 20160929
  27. ADRIAMYCIN [Concomitant]
     Active Substance: DOXORUBICIN HYDROCHLORIDE
     Dosage: 64 MG, ONCE, CYCLE 6
     Route: 042
     Dates: start: 20160929, end: 20160929
  28. DBL VINCRISTINE SULFATE [Concomitant]
     Active Substance: VINCRISTINE SULFATE
     Dosage: 1.8 MG, ONCE, CYCLE 5 (1 ML). STRENGTH: 1MG/1ML
     Route: 042
     Dates: start: 20160908, end: 20160908
  29. LASTET [Concomitant]
     Active Substance: ETOPOSIDE
     Indication: ANGIOIMMUNOBLASTIC T-CELL LYMPHOMA
     Dosage: 139.5 MG, ONCE, CYCLE 1. STRENGTH: 100MG/5ML
     Route: 042
     Dates: start: 20160616, end: 20160616
  30. LASTET [Concomitant]
     Active Substance: ETOPOSIDE
     Dosage: 136.5 MG, ONCE, CYCLE 4. STRENGTH: 100MG/5ML
     Route: 042
     Dates: start: 20160818, end: 20160818
  31. LASTET [Concomitant]
     Active Substance: ETOPOSIDE
     Dosage: 130 MG, ONCE, CYCLE 6. STRENGTH: 100MG/5ML
     Route: 042
     Dates: start: 20160929, end: 20160929
  32. ENDOXAN [Concomitant]
     Active Substance: CYCLOPHOSPHAMIDE
     Indication: ANGIOIMMUNOBLASTIC T-CELL LYMPHOMA
     Dosage: 1046 MG, ONCE, CYCLE 1
     Route: 042
     Dates: start: 20160616, end: 20160616
  33. ENDOXAN [Concomitant]
     Active Substance: CYCLOPHOSPHAMIDE
     Dosage: 984 MG, ONCE, CYCLE 3
     Route: 042
     Dates: start: 20160728, end: 20160728
  34. ALOXI [Concomitant]
     Active Substance: PALONOSETRON HYDROCHLORIDE
     Dosage: 0.25 MG, ONCE
     Route: 042
     Dates: start: 20160707, end: 20160707
  35. CARDIOXANE [Concomitant]
     Active Substance: DEXRAZOXANE HYDROCHLORIDE
     Dosage: 671 MG, ONCE
     Route: 042
     Dates: start: 20160707, end: 20160707
  36. CARDIOXANE [Concomitant]
     Active Substance: DEXRAZOXANE HYDROCHLORIDE
     Dosage: 680 MG, ONCE
     Route: 042
     Dates: start: 20160818, end: 20160818
  37. EMEND (FOSAPREPITANT DIMEGLUMINE) [Suspect]
     Active Substance: FOSAPREPITANT DIMEGLUMINE
     Dosage: 150 MG, ONCE
     Route: 042
     Dates: start: 20160818, end: 20160818
  38. LASTET [Concomitant]
     Active Substance: ETOPOSIDE
     Dosage: 134.2 MG, ONCE, CYCLE 2. STRENGTH: 100MG/5ML
     Route: 042
     Dates: start: 20160707, end: 20160707
  39. ENDOXAN [Concomitant]
     Active Substance: CYCLOPHOSPHAMIDE
     Dosage: 973 MG, ONCE, CYCLE 6
     Route: 042
     Dates: start: 20160929, end: 20160929
  40. SOLONDO [Concomitant]
     Active Substance: PREDNISOLONE
     Dosage: 40 MG, QD
     Route: 048
     Dates: start: 20160707, end: 20160707
  41. ALOXI [Concomitant]
     Active Substance: PALONOSETRON HYDROCHLORIDE
     Indication: PROPHYLAXIS OF NAUSEA AND VOMITING
     Dosage: 0.25 MG, ONCE
     Route: 042
     Dates: start: 20160616, end: 20160616
  42. VENTOLIN [Concomitant]
     Active Substance: ALBUTEROL SULFATE
     Indication: DYSPNOEA
     Dosage: 1 AMPULE, QD
     Route: 055
     Dates: start: 20160615, end: 20160620
  43. CARDIOXANE [Concomitant]
     Active Substance: DEXRAZOXANE HYDROCHLORIDE
     Dosage: 656 MG, ONCE
     Route: 042
     Dates: start: 20160728, end: 20160728
  44. CARDIOXANE [Concomitant]
     Active Substance: DEXRAZOXANE HYDROCHLORIDE
     Dosage: 660 MG, ONCE
     Route: 042
     Dates: start: 20160908, end: 20160908
  45. SEPTRIN [Concomitant]
     Active Substance: SULFAMETHOXAZOLE\TRIMETHOPRIM
     Dosage: 1 TABLET, BID
     Route: 048
     Dates: start: 20160908, end: 20160914
  46. LEVOFEXIN [Concomitant]
     Active Substance: LEVOFLOXACIN
     Dosage: 500 MG, QD
     Route: 048
     Dates: start: 20160707, end: 20160716
  47. CURAN [Concomitant]
     Active Substance: RANITIDINE HYDROCHLORIDE
     Indication: PROPHYLAXIS
     Dosage: 150 MG, BID
     Route: 048
     Dates: start: 20160611, end: 20160707
  48. SOLONDO [Concomitant]
     Active Substance: PREDNISOLONE
     Dosage: 40 MG, QD
     Route: 048
     Dates: start: 20160818, end: 20160822
  49. SEPTRIN [Concomitant]
     Active Substance: SULFAMETHOXAZOLE\TRIMETHOPRIM
     Dosage: 1 TABLET, BID
     Route: 048
     Dates: start: 20160818, end: 20160824
  50. LEVOFEXIN [Concomitant]
     Active Substance: LEVOFLOXACIN
     Dosage: 500 MG, QD
     Route: 048
     Dates: start: 20160728, end: 20160806
  51. LEVOFEXIN [Concomitant]
     Active Substance: LEVOFLOXACIN
     Dosage: 500 MG, QD
     Route: 048
     Dates: start: 20160818, end: 20160827
  52. EMEND (FOSAPREPITANT DIMEGLUMINE) [Suspect]
     Active Substance: FOSAPREPITANT DIMEGLUMINE
     Dosage: 150 MG, ONCE
     Route: 042
     Dates: start: 20160707, end: 20160707
  53. ADRIAMYCIN [Concomitant]
     Active Substance: DOXORUBICIN HYDROCHLORIDE
     Dosage: 65.6 MG, ONCE, CYCLE 3
     Route: 042
     Dates: start: 20160728, end: 20160728
  54. DBL VINCRISTINE SULFATE [Concomitant]
     Active Substance: VINCRISTINE SULFATE
     Dosage: 1.8 MG, ONCE, CYCLE 6 (1 ML). STRENGTH: 1MG/1ML
     Route: 042
     Dates: start: 20160929, end: 20160929
  55. SOLONDO [Concomitant]
     Active Substance: PREDNISOLONE
     Dosage: 40 MG, QD
     Route: 048
     Dates: start: 20160908, end: 20160912
  56. SOLONDO [Concomitant]
     Active Substance: PREDNISOLONE
     Dosage: 40 MG, QD
     Route: 048
     Dates: start: 20160929, end: 20161003
  57. SOLONDO [Concomitant]
     Active Substance: PREDNISOLONE
     Dosage: 30 MG, BID
     Route: 048
     Dates: start: 20160929, end: 20161003
  58. ALOXI [Concomitant]
     Active Substance: PALONOSETRON HYDROCHLORIDE
     Dosage: 0.25 MG, ONCE
     Route: 042
     Dates: start: 20160908, end: 20160908
  59. ADRIAMYCIN [Concomitant]
     Active Substance: DOXORUBICIN HYDROCHLORIDE
     Dosage: 68 MG, ONCE, CYCLE 4
     Route: 042
     Dates: start: 20160818, end: 20160818
  60. LASTET [Concomitant]
     Active Substance: ETOPOSIDE
     Dosage: 131 MG, ONCE, CYCLE 5. STRENGTH: 100MG/5ML
     Route: 042
     Dates: start: 20160908, end: 20160908
  61. ENDOXAN [Concomitant]
     Active Substance: CYCLOPHOSPHAMIDE
     Dosage: 984 MG, ONCE, CYCLE 5
     Route: 042
     Dates: start: 20160908, end: 20160908
  62. SOLONDO [Concomitant]
     Active Substance: PREDNISOLONE
     Dosage: 30 MG, BID
     Route: 048
     Dates: start: 20160616, end: 20160620
  63. SOLONDO [Concomitant]
     Active Substance: PREDNISOLONE
     Dosage: 40 MG, QD
     Route: 048
     Dates: start: 20160728, end: 20160801
  64. SOLONDO [Concomitant]
     Active Substance: PREDNISOLONE
     Dosage: 30 MG, BID
     Route: 048
     Dates: start: 20160728, end: 20160801
  65. SOLONDO [Concomitant]
     Active Substance: PREDNISOLONE
     Dosage: 30 MG, BID
     Route: 048
     Dates: start: 20160818, end: 20160822
  66. ALOXI [Concomitant]
     Active Substance: PALONOSETRON HYDROCHLORIDE
     Dosage: 0.25 MG, ONCE
     Route: 042
     Dates: start: 20160929, end: 20160929
  67. LASIX [Concomitant]
     Active Substance: FUROSEMIDE
     Indication: PLEURAL EFFUSION
     Dosage: 20 MG, QD. STRENGTH 20MG/2ML
     Route: 042
     Dates: start: 20160615, end: 20160616
  68. ATROVENT [Concomitant]
     Active Substance: IPRATROPIUM BROMIDE
     Indication: DYSPNOEA
     Dosage: 0.5 AMPULE, QD
     Route: 055
     Dates: start: 20160615, end: 20160620
  69. SEPTRIN [Concomitant]
     Active Substance: SULFAMETHOXAZOLE\TRIMETHOPRIM
     Dosage: 1 TABLET, BID
     Route: 048
     Dates: start: 20160707, end: 20160713
  70. SEPTRIN [Concomitant]
     Active Substance: SULFAMETHOXAZOLE\TRIMETHOPRIM
     Dosage: 1 TABLET, BID
     Route: 048
     Dates: start: 20160929, end: 20161005
  71. LEVOFEXIN [Concomitant]
     Active Substance: LEVOFLOXACIN
     Indication: INFECTION PROPHYLAXIS
     Dosage: 500 MG, QD
     Route: 048
     Dates: start: 20160616, end: 20160625
  72. LEVOFEXIN [Concomitant]
     Active Substance: LEVOFLOXACIN
     Dosage: 500 MG, QD
     Route: 048
     Dates: start: 20160908, end: 20160917

REACTIONS (18)
  - Platelet count decreased [Recovered/Resolved]
  - Platelet count decreased [Recovered/Resolved]
  - Neutrophil count decreased [Recovered/Resolved]
  - Neutrophil count decreased [Recovered/Resolved]
  - Pyrexia [Recovered/Resolved]
  - Neutrophil count decreased [Recovered/Resolved]
  - Hypertonic bladder [Recovered/Resolved]
  - Rhinorrhoea [Recovered/Resolved]
  - Pain in extremity [Recovering/Resolving]
  - Pyrexia [Recovered/Resolved]
  - Platelet count decreased [Recovered/Resolved]
  - Spinal compression fracture [Recovered/Resolved]
  - Back pain [Recovered/Resolved]
  - Hypoalbuminaemia [Recovered/Resolved]
  - Pyrexia [Recovered/Resolved]
  - Dyspepsia [Recovered/Resolved]
  - Constipation [Recovered/Resolved]
  - Anaemia [Recovered/Resolved]

NARRATIVE: CASE EVENT DATE: 20160620
